FAERS Safety Report 16910854 (Version 1)
Quarter: 2019Q4

REPORT INFORMATION
  Report Type: Spontaneous
  Country: US (occurrence: US)
  Receive Date: 20191012
  Receipt Date: 20191012
  Transmission Date: 20200122
  Serious: No
  Sender: FDA-Public Use
  Company Number: US-BION-007875

PATIENT
  Sex: Female

DRUGS (1)
  1. PROGESTERONE 100MG CAPSULE UNKNOWN [Suspect]
     Active Substance: PROGESTERONE
     Indication: PRODUCT USED FOR UNKNOWN INDICATION
     Dosage: STRENGTH: 100 MG?ONE IN MORNING AND TWO CAPSULES IN NIGHT

REACTIONS (2)
  - Dizziness [Unknown]
  - Fatigue [Unknown]
